FAERS Safety Report 10015154 (Version 2)
Quarter: 2014Q1

REPORT INFORMATION
  Report Type: Spontaneous
  Country: US (occurrence: US)
  Receive Date: 20140317
  Receipt Date: 20140317
  Transmission Date: 20141002
  Serious: Yes (Hospitalization)
  Sender: FDA-Public Use
  Company Number: US-GILEAD-2012-0058013

PATIENT
  Age: 65 Year
  Sex: Male

DRUGS (2)
  1. LETAIRIS [Suspect]
     Indication: PRODUCT USED FOR UNKNOWN INDICATION
     Dosage: 10 MG, UNK
     Route: 048
     Dates: start: 20120417, end: 20120629
  2. LETAIRIS [Suspect]
     Dosage: 10 UNK, UNK
     Route: 048
     Dates: end: 20120713

REACTIONS (2)
  - Fluid retention [Recovered/Resolved]
  - Weight increased [Unknown]
